FAERS Safety Report 25232447 (Version 2)
Quarter: 2025Q2

REPORT INFORMATION
  Report Type: Report from Study
  Country: BG (occurrence: BG)
  Receive Date: 20250423
  Receipt Date: 20250501
  Transmission Date: 20250716
  Serious: Yes (Death, Hospitalization)
  Sender: ABBVIE
  Company Number: BG-ABBVIE-6236998

PATIENT
  Sex: Male

DRUGS (1)
  1. SKYRIZI [Suspect]
     Active Substance: RISANKIZUMAB-RZAA
     Indication: Psoriasis
     Route: 058
     Dates: start: 202302

REACTIONS (2)
  - Death [Fatal]
  - Lung disorder [Unknown]
